FAERS Safety Report 7651732-3 (Version None)
Quarter: 2011Q3

REPORT INFORMATION
  Report Type: 
  Country: None (occurrence: None)
  Receive Date: 20110802
  Receipt Date: 20110728
  Transmission Date: 20111222
  Serious: Yes (Hospitalization)
  Sender: FDA-Public Use
  Company Number: US-MERCK-1107USA04021

PATIENT
  Age: 19 Year
  Sex: Male

DRUGS (1)
  1. MAXALT [Suspect]
     Route: 048

REACTIONS (6)
  - DIZZINESS [None]
  - HEADACHE [None]
  - NAUSEA [None]
  - BLINDNESS UNILATERAL [None]
  - AURA [None]
  - PARAESTHESIA [None]
